FAERS Safety Report 25122336 (Version 2)
Quarter: 2025Q2

REPORT INFORMATION
  Report Type: Report from Study
  Country: US (occurrence: US)
  Receive Date: 20250326
  Receipt Date: 20250428
  Transmission Date: 20250716
  Serious: No
  Sender: ACADIA PHARMACEUTICALS
  Company Number: US-ACADIA PHARMACEUTICALS INC.-ACA-2025-TRF-003241

PATIENT
  Age: 33 Year
  Sex: Male

DRUGS (32)
  1. DAYBUE [Suspect]
     Active Substance: TROFINETIDE
     Indication: Rett syndrome
     Dosage: 25 MILLILITER, BID (G-TUBE)
     Dates: start: 202310
  2. DIAZEPAM [Concomitant]
     Active Substance: DIAZEPAM
     Indication: Seizure
     Route: 054
  3. DIAZEPAM [Concomitant]
     Active Substance: DIAZEPAM
     Indication: Dental care
  4. DIPHENHYDRAMINE [Concomitant]
     Active Substance: DIPHENHYDRAMINE
     Indication: Hypersensitivity
  5. OXYCODONE [Concomitant]
     Active Substance: OXYCODONE
     Indication: Pain
     Dosage: GROUND 1 TABELT AND ADMINISTER VIA G TUBE TWICE DAILY AS NEED
  6. NALOXONE [Concomitant]
     Active Substance: NALOXONE
     Route: 045
  7. SODIUM CHLORIDE [Concomitant]
     Active Substance: SODIUM CHLORIDE
  8. CALCIUM\VITAMIN D [Concomitant]
     Active Substance: CALCIUM\VITAMIN D
     Dosage: GROUND 1 TAB INTO POWDER AND GIVE TO PATIENT VIA G TUBE TWICE DAILY
  9. POLYETHYLENE GLYCOLS [Concomitant]
     Active Substance: POLYETHYLENE GLYCOLS
  10. FLUTICASONE [Concomitant]
     Active Substance: FLUTICASONE
  11. SENNA [Concomitant]
     Active Substance: SENNOSIDES
     Indication: Constipation
     Dosage: 5 MILLILITER, BID
  12. DIAZEPAM [Concomitant]
     Active Substance: DIAZEPAM
     Dosage: 3 MILLILITER, TID
     Route: 048
  13. ALBUTEROL [Concomitant]
     Active Substance: ALBUTEROL
  14. LOPERAMIDE [Concomitant]
     Active Substance: LOPERAMIDE
     Dosage: 2 DOSAGE FORM, BID GASTROTOMY TUBE, BID, NOT TO EXCEED 3 CAPSULES OR 10 MG IN 24 HOURS
  15. ATROPINE OPHTHALMIC [Concomitant]
     Indication: Salivary hypersecretion
     Dosage: 2 DROP, BID, 1-2 DROPS , 1-3 TIMES PER DAY AS NEEDED
     Route: 060
  16. LEVETIRACETAM [Concomitant]
     Active Substance: LEVETIRACETAM
     Dosage: 15 MILLILITER, BID
  17. CETIRIZINE HYDROCHLORIDE [Concomitant]
     Active Substance: CETIRIZINE HYDROCHLORIDE
     Indication: Hypersensitivity
  18. LEVOCARNITINE [Concomitant]
     Active Substance: LEVOCARNITINE
     Dosage: 10 MILLILITER, TID
     Route: 048
  19. VIMPAT [Concomitant]
     Active Substance: LACOSAMIDE
     Indication: Epilepsy
     Dosage: 10 MILLILITER, BID
     Route: 048
  20. ACETAMINOPHEN [Concomitant]
     Active Substance: ACETAMINOPHEN
     Indication: Pain
     Route: 048
  21. ACETAMINOPHEN [Concomitant]
     Active Substance: ACETAMINOPHEN
     Indication: Pyrexia
  22. IBUPROFEN [Concomitant]
     Active Substance: IBUPROFEN
     Indication: Pyrexia
     Route: 048
  23. GEMTESA [Concomitant]
     Active Substance: VIBEGRON
     Dosage: 1 TAB GASTROTOMY TUBE
  24. FERROUS SULFATE [Concomitant]
     Active Substance: FERROUS SULFATE
     Indication: Iron deficiency anaemia
  25. OMEPRAZOLE [Concomitant]
     Active Substance: OMEPRAZOLE
     Dosage: 1 DOSAGE FORM, QD
     Route: 048
  26. ZINC OXIDE [Concomitant]
     Active Substance: ZINC OXIDE
     Route: 061
  27. NYSTATIN [Concomitant]
     Active Substance: NYSTATIN
     Indication: Fungal infection
     Dosage: 1 APPLY TOPICAL BID
     Route: 061
  28. KETOCONAZOLE [Concomitant]
     Active Substance: KETOCONAZOLE
     Indication: Fungal infection
     Dosage: 1 APPLY TOPICAL
     Route: 061
  29. TACROLIMUS [Concomitant]
     Active Substance: TACROLIMUS
     Dosage: 1 APPLY TOPICAL BID APPLY TWICE DAILY ON AFFECTED AREEA ON POSTERIOR NECK
     Route: 061
  30. BETAMETHASONE\CLOTRIMAZOLE [Concomitant]
     Active Substance: BETAMETHASONE\CLOTRIMAZOLE
     Route: 061
  31. NEOMYCIN\POLYMYXIN [Concomitant]
     Active Substance: NEOMYCIN\POLYMYXIN
     Dosage: 1 APPLY EYE BOTH, TID
  32. EPINEPHRINE [Concomitant]
     Active Substance: EPINEPHRINE
     Indication: Hypersensitivity
     Route: 030

REACTIONS (2)
  - Weight fluctuation [Unknown]
  - Weight decreased [Not Recovered/Not Resolved]

NARRATIVE: CASE EVENT DATE: 20240701
